FAERS Safety Report 6286692-3 (Version None)
Quarter: 2009Q3

REPORT INFORMATION
  Report Type: 
  Country: None (occurrence: None)
  Receive Date: 20090724
  Receipt Date: 20090713
  Transmission Date: 20100115
  Serious: Yes (Other)
  Sender: FDA-Public Use
  Company Number: 230005N09DEU

PATIENT
  Age: 42 Year
  Sex: Male

DRUGS (2)
  1. REBIF [Suspect]
     Indication: MULTIPLE SCLEROSIS
     Dosage: 22 MCG, 3 IN 1 WEEKS, SUBCUTANEOUS
     Route: 058
     Dates: start: 20090401, end: 20090427
  2. CITALOPRA/CITALOPRAM /00582601/ [Concomitant]

REACTIONS (5)
  - APATHY [None]
  - DEPRESSIVE SYMPTOM [None]
  - FATIGUE [None]
  - INSOMNIA [None]
  - SUICIDAL IDEATION [None]
